FAERS Safety Report 7029266-9 (Version None)
Quarter: 2010Q4

REPORT INFORMATION
  Report Type: 
  Country: None (occurrence: None)
  Receive Date: 20101005
  Receipt Date: 20100916
  Transmission Date: 20110411
  Serious: Yes (Hospitalization, Other)
  Sender: FDA-Public Use
  Company Number: PHHY2010JP59677

PATIENT
  Age: 75 Year
  Sex: Female

DRUGS (11)
  1. DIOVAN [Suspect]
     Dosage: 40 MG, UNK
     Route: 048
  2. BEZAFIBRATE [Interacting]
     Dosage: 200 MG, UNK
     Route: 048
  3. LEVOTHYROXINE SODIUM [Concomitant]
     Dosage: 50 MICROGRAM, UNK
     Route: 048
  4. FOLIC ACID [Concomitant]
     Dosage: 10 MG, UNK
     Route: 048
  5. LANSOPRAZOLE [Concomitant]
     Dosage: 30 MG, UNK
     Route: 048
  6. ALFACALCIDOL [Concomitant]
  7. EPOETIN ALFA [Concomitant]
     Dosage: 3000 IU, UNK
     Route: 042
     Dates: start: 20080118
  8. EPOETIN ALFA [Concomitant]
     Dosage: 1500 IU, UNK
     Route: 042
     Dates: start: 20080118
  9. TICLOPIDINE HYDROCHLORIDE [Concomitant]
     Dosage: 100 MG, UNK
     Route: 048
  10. ASPIRIN [Concomitant]
     Dosage: 100 MG, UNK
     Route: 048
  11. DARBEPOETIN ALFA [Concomitant]
     Dosage: 20 MICROGRAM, UNK
     Route: 042
     Dates: start: 20080119, end: 20080614

REACTIONS (7)
  - ANAEMIA [None]
  - BLOOD PRESSURE INCREASED [None]
  - BRAIN STEM HAEMORRHAGE [None]
  - DRUG INTERACTION [None]
  - FEMUR FRACTURE [None]
  - MYOCARDIAL ISCHAEMIA [None]
  - RHABDOMYOLYSIS [None]
